FAERS Safety Report 23933006 (Version 9)
Quarter: 2025Q2

REPORT INFORMATION
  Report Type: Report from Study
  Country: CN (occurrence: CN)
  Receive Date: 20240603
  Receipt Date: 20250610
  Transmission Date: 20250716
  Serious: Yes (Life-Threatening, Other)
  Sender: ROCHE
  Company Number: CN-ROCHE-3571677

PATIENT
  Age: 54 Year
  Sex: Male
  Weight: 72.5 kg

DRUGS (108)
  1. POLATUZUMAB VEDOTIN [Suspect]
     Active Substance: POLATUZUMAB VEDOTIN
     Indication: Diffuse large B-cell lymphoma
     Route: 042
     Dates: end: 20231112
  2. POLATUZUMAB VEDOTIN [Suspect]
     Active Substance: POLATUZUMAB VEDOTIN
     Route: 042
     Dates: end: 20231112
  3. RITUXIMAB [Suspect]
     Active Substance: RITUXIMAB
     Indication: Diffuse large B-cell lymphoma
     Route: 042
     Dates: end: 20231120
  4. RITUXIMAB [Suspect]
     Active Substance: RITUXIMAB
     Route: 042
     Dates: start: 20231121, end: 20231121
  5. ETOPOSIDE [Suspect]
     Active Substance: ETOPOSIDE
     Indication: Diffuse large B-cell lymphoma
     Route: 042
     Dates: start: 20231111, end: 20231113
  6. ETOPOSIDE [Suspect]
     Active Substance: ETOPOSIDE
     Route: 042
     Dates: start: 20231115, end: 20231115
  7. CYCLOPHOSPHAMIDE [Suspect]
     Active Substance: CYCLOPHOSPHAMIDE
     Indication: Diffuse large B-cell lymphoma
     Route: 042
     Dates: end: 20231118
  8. DOXORUBICIN [Suspect]
     Active Substance: DOXORUBICIN
     Indication: Diffuse large B-cell lymphoma
     Route: 042
     Dates: start: 20231111, end: 20231115
  9. ZANUBRUTINIB [Suspect]
     Active Substance: ZANUBRUTINIB
     Indication: Diffuse large B-cell lymphoma
     Route: 048
     Dates: start: 20231111, end: 20231213
  10. METHYLPREDNISOLONE SODIUM SUCCINATE [Concomitant]
     Active Substance: METHYLPREDNISOLONE SODIUM SUCCINATE
     Route: 042
     Dates: start: 20231117, end: 20231121
  11. METHYLPREDNISOLONE SODIUM SUCCINATE [Concomitant]
     Active Substance: METHYLPREDNISOLONE SODIUM SUCCINATE
     Route: 042
     Dates: start: 20231108, end: 20231109
  12. METHYLPREDNISOLONE SODIUM SUCCINATE [Concomitant]
     Active Substance: METHYLPREDNISOLONE SODIUM SUCCINATE
     Route: 042
     Dates: start: 20231109, end: 20231111
  13. METHYLPREDNISOLONE SODIUM SUCCINATE [Concomitant]
     Active Substance: METHYLPREDNISOLONE SODIUM SUCCINATE
     Route: 042
     Dates: start: 20231211, end: 20231211
  14. Omeprazole enteric-coated capsules [Concomitant]
     Route: 048
     Dates: start: 20231108, end: 20231123
  15. SODIUM BICARBONATE [Concomitant]
     Active Substance: SODIUM BICARBONATE
     Route: 042
     Dates: start: 20231108, end: 20231113
  16. SODIUM BICARBONATE [Concomitant]
     Active Substance: SODIUM BICARBONATE
     Route: 042
     Dates: start: 20231208, end: 20231208
  17. SODIUM BICARBONATE [Concomitant]
     Active Substance: SODIUM BICARBONATE
     Route: 042
     Dates: start: 20231114, end: 20231123
  18. SODIUM BICARBONATE [Concomitant]
     Active Substance: SODIUM BICARBONATE
     Route: 042
     Dates: start: 20231113, end: 20231115
  19. Levofloxacin sodium chloride injection [Concomitant]
     Dates: start: 20231109, end: 20231122
  20. Levofloxacin sodium chloride injection [Concomitant]
     Dates: start: 20231129, end: 20231210
  21. FUROSEMIDE [Concomitant]
     Active Substance: FUROSEMIDE
     Route: 042
     Dates: start: 20231109, end: 20231126
  22. FUROSEMIDE [Concomitant]
     Active Substance: FUROSEMIDE
     Route: 042
     Dates: start: 20231208, end: 20231208
  23. FUROSEMIDE [Concomitant]
     Active Substance: FUROSEMIDE
     Route: 042
     Dates: start: 20231210, end: 20231210
  24. RIVAROXABAN [Concomitant]
     Active Substance: RIVAROXABAN
     Route: 048
     Dates: start: 20231108, end: 20231113
  25. RIVAROXABAN [Concomitant]
     Active Substance: RIVAROXABAN
     Route: 048
     Dates: start: 20231109, end: 20231110
  26. GLUTATHIONE [Concomitant]
     Active Substance: GLUTATHIONE
     Route: 042
     Dates: start: 20231208, end: 20231208
  27. Entecavir tablets [Concomitant]
     Route: 048
     Dates: start: 20231109, end: 20231109
  28. Entecavir tablets [Concomitant]
     Route: 048
     Dates: start: 20231110, end: 20231207
  29. Imipenem injection [Concomitant]
     Route: 042
     Dates: start: 20231209, end: 20231209
  30. ENOXAPARIN SODIUM [Concomitant]
     Active Substance: ENOXAPARIN SODIUM
     Dates: start: 20231115, end: 20231115
  31. AMIKACIN SULFATE [Concomitant]
     Active Substance: AMIKACIN SULFATE
     Dates: start: 20231209, end: 20231210
  32. Potassium chloride sustained-release tablets [Concomitant]
     Dates: start: 20231208, end: 20231209
  33. Potassium chloride sustained-release tablets [Concomitant]
     Dates: start: 20231125, end: 20231125
  34. Potassium chloride sustained-release tablets [Concomitant]
     Dates: start: 20231201, end: 20231201
  35. Potassium chloride sustained-release tablets [Concomitant]
     Dates: start: 20231127, end: 20231129
  36. DEXAMETHASONE SODIUM PHOSPHATE [Concomitant]
     Active Substance: DEXAMETHASONE SODIUM PHOSPHATE
     Route: 042
     Dates: start: 20231110, end: 20231113
  37. DEXAMETHASONE SODIUM PHOSPHATE [Concomitant]
     Active Substance: DEXAMETHASONE SODIUM PHOSPHATE
     Route: 042
     Dates: start: 20231115, end: 20231115
  38. DEXAMETHASONE SODIUM PHOSPHATE [Concomitant]
     Active Substance: DEXAMETHASONE SODIUM PHOSPHATE
     Route: 042
     Dates: start: 20231117, end: 20231118
  39. DEXAMETHASONE SODIUM PHOSPHATE [Concomitant]
     Active Substance: DEXAMETHASONE SODIUM PHOSPHATE
     Route: 042
     Dates: start: 20231121, end: 20231121
  40. DEXAMETHASONE SODIUM PHOSPHATE [Concomitant]
     Active Substance: DEXAMETHASONE SODIUM PHOSPHATE
     Route: 042
     Dates: start: 20231125, end: 20231125
  41. CHLORHEXIDINE [Concomitant]
     Active Substance: CHLORHEXIDINE
     Dates: start: 20231113, end: 20231113
  42. Isosorbide nitrate injection [Concomitant]
     Dates: start: 20231113, end: 20231120
  43. FEBUXOSTAT [Concomitant]
     Active Substance: FEBUXOSTAT
     Route: 048
     Dates: start: 20231110, end: 20231113
  44. NOREPINEPHRINE BITARTRATE [Concomitant]
     Active Substance: NOREPINEPHRINE BITARTRATE
     Dates: start: 20231116, end: 20231116
  45. NOREPINEPHRINE BITARTRATE [Concomitant]
     Active Substance: NOREPINEPHRINE BITARTRATE
     Dates: start: 20231213, end: 20231213
  46. Aureomycin eye ointment [Concomitant]
     Dates: start: 20231116, end: 20231116
  47. Etamsylate Injection [Concomitant]
     Route: 042
     Dates: start: 20231116, end: 20231205
  48. Recombinant human platelet [Concomitant]
     Route: 058
     Dates: start: 20231116, end: 20231205
  49. Vitamin B6 inj [Concomitant]
     Route: 042
     Dates: start: 20231116, end: 20231116
  50. Vitamin B6 inj [Concomitant]
     Route: 042
     Dates: start: 20231208, end: 20231208
  51. CETIRIZINE [Concomitant]
     Active Substance: CETIRIZINE HYDROCHLORIDE
     Route: 048
     Dates: start: 20231116, end: 20231117
  52. CETIRIZINE [Concomitant]
     Active Substance: CETIRIZINE HYDROCHLORIDE
     Route: 048
     Dates: start: 20231121, end: 20231125
  53. CETIRIZINE [Concomitant]
     Active Substance: CETIRIZINE HYDROCHLORIDE
     Route: 048
     Dates: start: 20231201, end: 20231203
  54. MUPIROCIN [Concomitant]
     Active Substance: MUPIROCIN
     Dates: start: 20231117, end: 20231117
  55. Human blood albumin [Concomitant]
     Route: 042
     Dates: start: 20231120, end: 20231120
  56. Human blood albumin [Concomitant]
     Route: 042
     Dates: start: 20231122, end: 20231206
  57. Human blood albumin [Concomitant]
     Route: 042
     Dates: start: 20231211, end: 20231211
  58. granulocyte [Concomitant]
     Dates: start: 20231120, end: 20231202
  59. MEROPENEM [Concomitant]
     Active Substance: MEROPENEM
     Route: 042
     Dates: start: 20231121, end: 20231127
  60. VORICONAZOLE [Concomitant]
     Active Substance: VORICONAZOLE
     Dates: start: 20231121, end: 20231128
  61. VORICONAZOLE [Concomitant]
     Active Substance: VORICONAZOLE
     Dates: start: 20231122, end: 20231128
  62. VORICONAZOLE [Concomitant]
     Active Substance: VORICONAZOLE
     Route: 042
     Dates: start: 20231127, end: 20231127
  63. Indomethacin suppository [Concomitant]
     Dates: start: 20231121, end: 20231121
  64. Indomethacin suppository [Concomitant]
     Dates: start: 20231125, end: 20231126
  65. Vancomycin for injection [Concomitant]
     Dates: start: 20231122, end: 20231123
  66. Magnesium isoglycyrrhizinate injection [Concomitant]
     Route: 042
     Dates: start: 20231122, end: 20231128
  67. Vitamin B2 tablets [Concomitant]
     Route: 048
     Dates: start: 20231123, end: 20231124
  68. AMBROXOL HYDROCHLORIDE [Concomitant]
     Active Substance: AMBROXOL HYDROCHLORIDE
     Route: 042
     Dates: start: 20231123, end: 20231204
  69. AMBROXOL HYDROCHLORIDE [Concomitant]
     Active Substance: AMBROXOL HYDROCHLORIDE
     Route: 042
     Dates: start: 20231210, end: 20231210
  70. Chymotrypsin for Injection [Concomitant]
     Dates: start: 20231124, end: 20231209
  71. immunoglobulin [Concomitant]
     Route: 042
     Dates: start: 20231124, end: 20231129
  72. SULFAMETHOXAZOLE [Concomitant]
     Active Substance: SULFAMETHOXAZOLE
     Route: 048
     Dates: start: 20231124
  73. Acetylcysteine Solution for Inhalation [Concomitant]
     Route: 055
     Dates: start: 20231124, end: 20231209
  74. Urokinase for injection [Concomitant]
     Route: 042
     Dates: start: 20231125, end: 20231125
  75. Urokinase for injection [Concomitant]
     Route: 042
     Dates: start: 20231208, end: 20231208
  76. IBUPROFEN [Concomitant]
     Active Substance: IBUPROFEN
     Route: 048
     Dates: start: 20231126, end: 20231126
  77. TIGECYCLINE [Concomitant]
     Active Substance: TIGECYCLINE
     Route: 042
     Dates: start: 20231127, end: 20231207
  78. TIGECYCLINE [Concomitant]
     Active Substance: TIGECYCLINE
     Route: 042
     Dates: start: 20231209, end: 20231209
  79. Terbinafine hydrochloride cream [Concomitant]
     Dates: start: 20231127, end: 20231204
  80. Ceftazidime avibactam sodium for injection [Concomitant]
     Dates: start: 20231128, end: 20231209
  81. Posaconazole oral solution [Concomitant]
     Route: 048
     Dates: start: 20231128, end: 20231128
  82. MOSAPRIDE CITRATE [Concomitant]
     Active Substance: MOSAPRIDE CITRATE
     Route: 048
     Dates: start: 20231208, end: 20231208
  83. Liquid paraffin wax [Concomitant]
     Dates: start: 20231208, end: 20231208
  84. DOPAMINE [Concomitant]
     Active Substance: DOPAMINE HYDROCHLORIDE
     Dates: start: 20231209, end: 20231212
  85. Simethicone emulsion [Concomitant]
     Dates: start: 20231209, end: 20231209
  86. Glycerin enema [Concomitant]
     Dates: start: 20231210, end: 20231210
  87. Promethazine injection [Concomitant]
     Route: 030
     Dates: start: 20231121, end: 20231122
  88. Promethazine injection [Concomitant]
     Route: 030
     Dates: start: 20231121, end: 20231121
  89. ACYCLOVIR [Concomitant]
     Active Substance: ACYCLOVIR
     Route: 048
     Dates: start: 20231205, end: 20231205
  90. Cilastatin sodium salt needle [Concomitant]
     Dates: start: 20231127, end: 20231128
  91. EUCALYPTUS [Concomitant]
     Active Substance: EUCALYPTUS GLOBULUS POLLEN\EUCALYPTUS GUM
     Route: 048
     Dates: start: 20231207
  92. ACETAMINOPHEN [Concomitant]
     Active Substance: ACETAMINOPHEN
     Route: 048
     Dates: start: 20231211, end: 20231211
  93. dopamine hydrochloride injection [Concomitant]
     Route: 050
     Dates: start: 20231212, end: 20231213
  94. dopamine hydrochloride injection [Concomitant]
     Route: 050
     Dates: start: 20231209, end: 20231212
  95. Succinyl gelatin injection [Concomitant]
     Route: 042
     Dates: start: 20231213, end: 20231213
  96. Succinyl gelatin injection [Concomitant]
     Route: 042
     Dates: start: 20231209, end: 20231209
  97. CEFTAZIDIME [Concomitant]
     Active Substance: CEFTAZIDIME
     Route: 042
     Dates: start: 20231108, end: 20231109
  98. CEFTAZIDIME [Concomitant]
     Active Substance: CEFTAZIDIME
     Route: 042
     Dates: start: 20231107, end: 20231108
  99. Morphine sulfate sustained release tablet [Concomitant]
     Route: 048
     Dates: start: 20231109, end: 20231109
  100. Morphine sulfate sustained release tablet [Concomitant]
     Route: 048
     Dates: start: 20231108, end: 20231108
  101. Morphine sulfate sustained release tablet [Concomitant]
     Route: 048
     Dates: start: 20231115, end: 20231115
  102. Pethidine hydrochloride injection [Concomitant]
     Route: 030
     Dates: start: 20231110, end: 20231110
  103. ESTAZOLAM [Concomitant]
     Active Substance: ESTAZOLAM
     Route: 048
     Dates: start: 20231203, end: 20231203
  104. isosorbide dinitrate injection [Concomitant]
     Dates: start: 20231121, end: 20231126
  105. isosorbide dinitrate injection [Concomitant]
     Route: 042
     Dates: start: 20231127
  106. Light liquid paraffin wax [Concomitant]
     Route: 048
     Dates: start: 20231208, end: 20231208
  107. Compound paracetamol tablets [Concomitant]
     Route: 048
     Dates: start: 20231107, end: 20231107
  108. Paracetamol oral suspension [Concomitant]
     Route: 048
     Dates: start: 20231211

REACTIONS (23)
  - Bacterial sepsis [Not Recovered/Not Resolved]
  - Anaemia [Not Recovered/Not Resolved]
  - White blood cell count decreased [Recovered/Resolved]
  - Neutrophil count decreased [Recovered/Resolved]
  - Gamma-glutamyltransferase increased [Recovered/Resolved]
  - Aspartate aminotransferase increased [Recovered/Resolved with Sequelae]
  - Enterococcal infection [Not Recovered/Not Resolved]
  - Escherichia infection [Not Recovered/Not Resolved]
  - Effusion [Not Recovered/Not Resolved]
  - Pneumonia [Not Recovered/Not Resolved]
  - Platelet count decreased [Not Recovered/Not Resolved]
  - Hypoalbuminaemia [Not Recovered/Not Resolved]
  - Alanine aminotransferase increased [Recovered/Resolved]
  - Blood alkaline phosphatase increased [Recovered/Resolved]
  - Myelosuppression [Recovered/Resolved]
  - Myocardial injury [Not Recovered/Not Resolved]
  - Drug-induced liver injury [Not Recovered/Not Resolved]
  - Hypocalcaemia [Not Recovered/Not Resolved]
  - Hypochloraemia [Not Recovered/Not Resolved]
  - Hyperuricaemia [Not Recovered/Not Resolved]
  - Lymphocyte count increased [Recovered/Resolved]
  - Hypophosphataemia [Recovered/Resolved]
  - Hypokalaemia [Recovered/Resolved]

NARRATIVE: CASE EVENT DATE: 20231111
